FAERS Safety Report 23222318 (Version 1)
Quarter: 2023Q4

REPORT INFORMATION
  Report Type: Spontaneous
  Country: CA (occurrence: CA)
  Receive Date: 20231123
  Receipt Date: 20231123
  Transmission Date: 20240110
  Serious: Yes (Hospitalization, Other)
  Sender: FDA-Public Use
  Company Number: CA-TEVA-2023-CA-2948654

PATIENT
  Age: 51 Year
  Sex: Female
  Weight: 80 kg

DRUGS (1)
  1. CLINDAMYCIN [Suspect]
     Active Substance: CLINDAMYCIN
     Indication: Rash
     Dosage: 1200 MILLIGRAM DAILY;
     Route: 048

REACTIONS (3)
  - Clostridium difficile colitis [Recovering/Resolving]
  - Colectomy [Recovering/Resolving]
  - Ileostomy [Recovering/Resolving]
